FAERS Safety Report 5014370-7 (Version None)
Quarter: 2006Q2

REPORT INFORMATION
  Report Type: 
  Country: None (occurrence: None)
  Receive Date: 20060525
  Receipt Date: 20060502
  Transmission Date: 20061013
  Serious: Yes (Death)
  Sender: FDA-Public Use
  Company Number: JP200605002212

PATIENT
  Age: 54 Year
  Sex: Female
  Weight: 51.1 kg

DRUGS (7)
  1. RALOXIFENE HCL [Suspect]
     Indication: OSTEOPOROSIS POSTMENOPAUSAL
     Dosage: 60 MG, DAILY (1/D), ORAL
     Route: 048
     Dates: start: 20050406, end: 20060122
  2. PREDNISOLONE [Concomitant]
  3. KETOBUN A (ALLOPURINOL) TABLET [Concomitant]
  4. EPADEL (ETHYL ICOSAPENTATE) CAPSULE [Concomitant]
  5. MUCOSTA (REBAMIPIDE) TABLET [Concomitant]
  6. BIOFERMIN (BACILLUS SUBTILIS, LACTOBACILLUS ACIDOPHILUS, STREPTOCOCCUS [Concomitant]
  7. MUCODYNE (CARBOCISTEINE) TABLET [Concomitant]

REACTIONS (1)
  - SEPSIS [None]
